FAERS Safety Report 7736286-5 (Version None)
Quarter: 2011Q3

REPORT INFORMATION
  Report Type: 
  Country: None (occurrence: None)
  Receive Date: 20110817
  Receipt Date: 20110418
  Transmission Date: 20111222
  Serious: Yes (Other)
  Sender: FDA-Public Use
  Company Number: 201110253

PATIENT
  Age: 46 Year
  Sex: Male

DRUGS (1)
  1. LIORESAL [Suspect]
     Indication: MUSCLE SPASTICITY
     Dosage: MCG, DAILY, INTRATHECAL
     Route: 037

REACTIONS (10)
  - THERAPEUTIC RESPONSE DECREASED [None]
  - FUNCTIONAL GASTROINTESTINAL DISORDER [None]
  - LIMB DISCOMFORT [None]
  - ANAEMIA [None]
  - OVERDOSE [None]
  - DECUBITUS ULCER [None]
  - EMERGENCY CARE [None]
  - HYPERAESTHESIA [None]
  - WOUND SECRETION [None]
  - OEDEMA PERIPHERAL [None]
